FAERS Safety Report 8596257 (Version 2)
Quarter: 2013Q2

REPORT INFORMATION
  Report Type: Spontaneous
  Country: US (occurrence: US)
  Receive Date: 20120605
  Receipt Date: 20130628
  Transmission Date: 20140414
  Serious: Yes (Hospitalization, Other)
  Sender: FDA-Public Use
  Company Number: US-ASTRAZENECA-2012SE35078

PATIENT
  Age: 62 Year
  Sex: Female

DRUGS (21)
  1. NEXIUM [Suspect]
     Indication: DYSPEPSIA
     Route: 048
     Dates: start: 2004
  2. NEXIUM [Suspect]
     Indication: GASTRIC DISORDER
     Route: 048
     Dates: start: 2004
  3. NEXIUM [Suspect]
     Indication: GASTROOESOPHAGEAL REFLUX DISEASE
     Route: 048
     Dates: start: 2004
  4. MYLANTA [Concomitant]
     Indication: DYSPEPSIA
     Dosage: 1 TABLESPOON AS NEEDED
     Dates: start: 2005
  5. PREVACID [Concomitant]
     Indication: DYSPEPSIA
     Dates: start: 2011
  6. RANITIDINE/ZANTAC [Concomitant]
     Indication: ABDOMINAL DISCOMFORT
     Route: 048
     Dates: start: 2003
  7. PEPCID [Concomitant]
     Dates: start: 2004
  8. ACETAMINOPHEN/TYLENOL [Concomitant]
     Indication: PAIN
     Dosage: 500MG 2 AS NEEDED
  9. IRON [Concomitant]
  10. CLONIDINE HCL [Concomitant]
     Route: 048
  11. TRAMADOL HCL [Concomitant]
     Indication: PAIN
     Route: 048
  12. PRO AIR HFA [Concomitant]
     Dosage: 108 MCG/ACT 2 PUFF AS NEEDED EVERY 4 HRS
     Route: 055
  13. TRICOR/FENOFIBRATE [Concomitant]
     Route: 048
  14. TRICOR/FENOFIBRATE [Concomitant]
     Route: 048
  15. CARVEDILOL [Concomitant]
     Route: 048
  16. LISINOPRIL [Concomitant]
     Route: 048
  17. PAXCIL [Concomitant]
     Route: 048
  18. PLAVIX [Concomitant]
     Route: 048
  19. ZOLPIDEM TARTRATE [Concomitant]
     Route: 048
  20. SIMVASTATIN [Concomitant]
     Dosage: 10MG ORALLY ONCE A DAY, 20MG PM
     Route: 048
  21. NORVASC [Concomitant]
     Route: 048

REACTIONS (11)
  - Gallbladder disorder [Unknown]
  - Hypertension [Unknown]
  - Cerebrovascular accident [Unknown]
  - Headache [Unknown]
  - Osteoporosis [Unknown]
  - Multiple fractures [Unknown]
  - Tooth fracture [Unknown]
  - Diabetes mellitus [Unknown]
  - Cataract [Unknown]
  - Glaucoma [Unknown]
  - Abdominal discomfort [Unknown]
